FAERS Safety Report 15819828 (Version 1)
Quarter: 2019Q1

REPORT INFORMATION
  Report Type: Other
  Country: ES (occurrence: ES)
  Receive Date: 20190114
  Receipt Date: 20190114
  Transmission Date: 20190417
  Serious: Yes (Other)
  Sender: FDA-Public Use
  Company Number: ES-CELLTRION INC.-2019ES017600

PATIENT

DRUGS (2)
  1. TRUXIMA [Suspect]
     Active Substance: RITUXIMAB-ABBS
     Indication: SYSTEMIC LUPUS ERYTHEMATOSUS
     Dosage: 1000 MG, 2/WEEK
     Route: 042
     Dates: start: 20181129, end: 20181129
  2. TRUXIMA [Suspect]
     Active Substance: RITUXIMAB-ABBS
     Indication: SYSTEMIC SCLERODERMA
     Dosage: 1000 MG, 2/WEEK
     Route: 042
     Dates: start: 20181114, end: 20181114

REACTIONS (2)
  - Immune system disorder [Recovered/Resolved]
  - Off label use [Unknown]

NARRATIVE: CASE EVENT DATE: 20181129
